FAERS Safety Report 14828084 (Version 1)
Quarter: 2018Q2

REPORT INFORMATION
  Report Type: Spontaneous
  Country: GB (occurrence: GB)
  Receive Date: 20180430
  Receipt Date: 20180430
  Transmission Date: 20180711
  Serious: Yes (Other)
  Sender: FDA-Public Use
  Company Number: GB-DRREDDYS-GER/UKI/18/0098268

PATIENT
  Age: 60 Year
  Sex: Male
  Weight: 59.87 kg

DRUGS (2)
  1. CIPROFLOXACIN 500MG FILM-COATED TABLETS, DR. REDDY^S [Suspect]
     Active Substance: CIPROFLOXACIN
     Indication: GENITOURINARY TRACT INFECTION
     Route: 048
     Dates: start: 20170807, end: 20170814
  2. SANDOZ LTD BISOPROLOL [Concomitant]
     Active Substance: BISOPROLOL
     Indication: PRODUCT USED FOR UNKNOWN INDICATION

REACTIONS (2)
  - Vitreous floaters [Not Recovered/Not Resolved]
  - Condition aggravated [Unknown]

NARRATIVE: CASE EVENT DATE: 20170814
